FAERS Safety Report 6711369-7 (Version None)
Quarter: 2010Q2

REPORT INFORMATION
  Report Type: 
  Country: None (occurrence: None)
  Receive Date: 20100505
  Receipt Date: 20100426
  Transmission Date: 20101027
  Serious: Yes (Other)
  Sender: FDA-Public Use
  Company Number: JP-PFIZER INC-2010050206

PATIENT
  Age: 26 Year
  Sex: Female

DRUGS (7)
  1. ZITHROMAX [Suspect]
     Indication: UPPER RESPIRATORY TRACT INFLAMMATION
     Dosage: 500 MG/DAY
     Route: 048
     Dates: start: 20100413, end: 20100414
  2. DASEN [Concomitant]
     Dosage: UNK
  3. AMBROXOL HYDROCHLORIDE [Concomitant]
     Dosage: UNK
  4. BROCIN [Concomitant]
     Dosage: UNK
  5. SENEGA SYRUP [Concomitant]
     Dosage: UNK
  6. AZUNOL [Concomitant]
     Dosage: UNK
  7. APRICOT KERNEL WATER [Concomitant]
     Dosage: UNK

REACTIONS (2)
  - BLISTER [None]
  - RASH [None]
